FAERS Safety Report 6690500-6 (Version None)
Quarter: 2010Q2

REPORT INFORMATION
  Report Type: 
  Country: None (occurrence: None)
  Receive Date: 20100421
  Receipt Date: 20100414
  Transmission Date: 20101027
  Serious: Yes (Hospitalization, Disabling)
  Sender: FDA-Public Use
  Company Number: US-SANOFI-AVENTIS-2010SA022478

PATIENT
  Age: 49 Year
  Sex: Male

DRUGS (14)
  1. PLAVIX [Suspect]
     Route: 048
     Dates: start: 20071219, end: 20080201
  2. PLAVIX [Suspect]
     Indication: STENT PLACEMENT
     Route: 048
     Dates: start: 20071219, end: 20080201
  3. PLAVIX [Suspect]
     Route: 048
     Dates: start: 20090101
  4. PLAVIX [Suspect]
     Route: 048
     Dates: start: 20090101
  5. PLAVIX [Suspect]
     Route: 048
     Dates: start: 20080201, end: 20090801
  6. PLAVIX [Suspect]
     Route: 048
     Dates: start: 20080201, end: 20090801
  7. LIPITOR [Concomitant]
  8. RANITIDINE [Concomitant]
  9. BUSPAR [Concomitant]
  10. LISINOPRIL [Concomitant]
  11. METOPROLOL TARTRATE [Concomitant]
  12. COLACE [Concomitant]
  13. DIAZEPAM [Concomitant]
  14. ACETAMINOPHEN AND HYDROCODONE BITARTRATE [Concomitant]

REACTIONS (4)
  - FATIGUE [None]
  - GAIT DISTURBANCE [None]
  - MASS [None]
  - MYOCARDIAL INFARCTION [None]
